FAERS Safety Report 8867243 (Version 1)
Quarter: 2012Q4

REPORT INFORMATION
  Report Type: 
  Country: US (occurrence: US)
  Receive Date: 20121025
  Receipt Date: 20121025
  Transmission Date: 20130627
  Serious: No
  Sender: FDA-Public Use
  Company Number: US-AMGEN-USASP2012015611

PATIENT
  Age: 60 Year
  Sex: Female

DRUGS (5)
  1. ENBREL [Suspect]
     Indication: RHEUMATOID ARTHRITIS
     Dosage: 50 mg, qwk
     Route: 058
     Dates: start: 20120205
  2. ESTRACE [Concomitant]
     Dosage: 1 mg, UNK
  3. MULTIVITAMIN                       /00097801/ [Concomitant]
  4. MOTRIN [Concomitant]
     Dosage: 200 mg, UNK
  5. ARTHROTEC [Concomitant]

REACTIONS (2)
  - Headache [Recovered/Resolved]
  - Dry eye [Not Recovered/Not Resolved]
